FAERS Safety Report 6830877-1 (Version None)
Quarter: 2010Q3

REPORT INFORMATION
  Report Type: 
  Country: None (occurrence: None)
  Receive Date: 20100712
  Receipt Date: 20100625
  Transmission Date: 20110219
  Serious: Yes (Hospitalization)
  Sender: FDA-Public Use
  Company Number: FR-JNJFOC-20100701974

PATIENT
  Sex: Female

DRUGS (2)
  1. IXPRIM [Suspect]
     Indication: MUSCULOSKELETAL PAIN
     Dosage: 3-6 TABLETS DAILY
     Route: 048
  2. DIPROSONE [Concomitant]
     Route: 013

REACTIONS (1)
  - ATRIAL FIBRILLATION [None]
